FAERS Safety Report 10158409 (Version 1)
Quarter: 2014Q2

REPORT INFORMATION
  Report Type: Report from Study
  Country: BR (occurrence: BR)
  Receive Date: 20140507
  Receipt Date: 20140507
  Transmission Date: 20141212
  Serious: Yes (Other)
  Sender: FDA-Public Use
  Company Number: PHHY2014BR054608

PATIENT
  Sex: Female
  Weight: 74 kg

DRUGS (4)
  1. DIOVAN [Suspect]
     Indication: HYPERTENSION
     Dosage: UNK UKN, QD
     Route: 048
  2. RETEMIC [Suspect]
     Indication: URINARY INCONTINENCE
     Dosage: 1 DF, Q12H (5 MG)
     Route: 048
     Dates: end: 201310
  3. LOSARTAN [Concomitant]
     Indication: HYPERTENSION
     Dosage: UNK UKN, UNK
  4. OMEPRAZOLE [Concomitant]
     Indication: ABDOMINAL DISCOMFORT
     Dosage: UNK UKN, UNK

REACTIONS (3)
  - Dementia [Unknown]
  - Osteoarthritis [Unknown]
  - Pain [Unknown]
